FAERS Safety Report 23370290 (Version 1)
Quarter: 2024Q1

REPORT INFORMATION
  Report Type: Spontaneous
  Country: US (occurrence: US)
  Receive Date: 20240105
  Receipt Date: 20240105
  Transmission Date: 20240410
  Serious: No
  Sender: FDA-Public Use
  Company Number: US-SA-SAC20231227001075

PATIENT
  Sex: Female

DRUGS (1)
  1. DUPIXENT [Suspect]
     Active Substance: DUPILUMAB
     Indication: Dermatitis atopic
     Dosage: 300MG/2ML EVERY 14 DAYS
     Route: 058
     Dates: start: 202009

REACTIONS (3)
  - Fungal skin infection [Unknown]
  - Rash erythematous [Unknown]
  - Skin discolouration [Unknown]
